FAERS Safety Report 25702963 (Version 3)
Quarter: 2025Q4

REPORT INFORMATION
  Report Type: Report from Study
  Country: US (occurrence: US)
  Receive Date: 20250819
  Receipt Date: 20251224
  Transmission Date: 20260117
  Serious: Yes (Hospitalization, Other)
  Sender: ABBVIE
  Company Number: US-ABBVIE-6419851

PATIENT
  Age: 78 Year
  Sex: Female
  Weight: 53.07 kg

DRUGS (11)
  1. RINVOQ [Suspect]
     Active Substance: UPADACITINIB
     Indication: Crohn^s disease
     Dosage: FORM STRENGTH 45 MILLIGRAM
     Route: 048
     Dates: start: 202502, end: 202504
  2. RINVOQ [Suspect]
     Active Substance: UPADACITINIB
     Indication: Crohn^s disease
     Dosage: FORM STRENGTH 45 MILLIGRAM
     Route: 048
     Dates: start: 202508
  3. PROTONIX [Concomitant]
     Active Substance: PANTOPRAZOLE SODIUM
     Indication: Dyspepsia
  4. SYNTHROID [Concomitant]
     Active Substance: LEVOTHYROXINE SODIUM
     Indication: Thyroid disorder
  5. NORCO [Concomitant]
     Active Substance: ACETAMINOPHEN\HYDROCODONE BITARTRATE
     Indication: Pain
     Dosage: 5-325 MG PER TABLET, ?TAKE 1 TABLET BY MOUTH EVERY 6 (SIX) HOURS AS NEEDED UP TO 7 DAYS
     Route: 048
  6. IMODIUM [Concomitant]
     Active Substance: LOPERAMIDE HYDROCHLORIDE
     Indication: Diarrhoea
     Dosage: TAKE 1 CAPSULE (2 MG TOTAL) BY MOUTH 4 (FOUR) TIMES A DAY AS NEEDED UP TO 10 DAYS
     Route: 048
  7. ZOFRAN [Concomitant]
     Active Substance: ONDANSETRON HYDROCHLORIDE
     Indication: Nausea
     Dosage: TAKE 1 TABLET (8 MG TOTAL) BY MOUTH EVERY 8 (EIGHT) HOURS AS NEEDED?8 MG DISINTEGRATING TABLET
     Route: 048
  8. DELTASONE [Concomitant]
     Active Substance: PREDNISONE
     Indication: Product used for unknown indication
     Dosage: TAKE 2 TABLETS (40 MG TOTAL) BY MOUTH DAILY FOR 90 DAYS
     Route: 048
  9. LOTREL [Concomitant]
     Active Substance: AMLODIPINE BESYLATE\BENAZEPRIL HYDROCHLORIDE
     Indication: Product used for unknown indication
     Route: 048
  10. ALBUTEROL [Concomitant]
     Active Substance: ALBUTEROL
     Indication: Wheezing
     Dosage: 90 MCG/ACTUATION INHALER ?INHALE 2 PUFFS INTO THE L UNGS EVERY 4 (FOUR) HOURS AS NEEDED?INHALE 2 ...
  11. CYMBALTA [Concomitant]
     Active Substance: DULOXETINE HYDROCHLORIDE
     Indication: Product used for unknown indication
     Dosage: TAKE 1 CAPSULE (60 MG TOTAL) BY MOUTH EVERY EVENING?DELAYED RELEASE
     Route: 048

REACTIONS (25)
  - Intestinal obstruction [Recovered/Resolved]
  - Nasopharyngitis [Recovering/Resolving]
  - Diabetes mellitus [Recovered/Resolved]
  - Crohn^s disease [Recovered/Resolved]
  - Abdominal adhesions [Recovered/Resolved]
  - Essential hypertension [Unknown]
  - Hyperlipidaemia [Unknown]
  - Gastrooesophageal reflux disease [Unknown]
  - Hypothyroidism [Unknown]
  - Mobility decreased [Unknown]
  - Metastatic neoplasm [Unknown]
  - Small intestinal obstruction [Recovered/Resolved]
  - Peritoneal disorder [Unknown]
  - Anxiety [Unknown]
  - Depression [Unknown]
  - Acute kidney injury [Recovered/Resolved]
  - Nausea [Unknown]
  - Vomiting [Unknown]
  - Abdominal pain [Unknown]
  - Renal cyst [Unknown]
  - Atelectasis [Unknown]
  - Scar [Unknown]
  - Physical deconditioning [Unknown]
  - Blood thyroid stimulating hormone decreased [Unknown]
  - Constipation [Recovered/Resolved]

NARRATIVE: CASE EVENT DATE: 20250101
